FAERS Safety Report 11198625 (Version 1)
Quarter: 2015Q2

REPORT INFORMATION
  Report Type: Spontaneous
  Country: US (occurrence: None)
  Receive Date: 20150616
  Receipt Date: 20150616
  Transmission Date: 20150821
  Serious: Yes (Hospitalization)
  Sender: FDA-Public Use
  Company Number: 2015HINLIT0490

PATIENT
  Age: 60 Year
  Sex: Male

DRUGS (3)
  1. SIMVASTATIN (SIMVASTATIN) UNKNOWN, UNKNOWN [Suspect]
     Active Substance: SIMVASTATIN
     Indication: HYPERTENSION
     Dosage: 80 MG, QD, NIGHTLY, UNKNOWN
  2. AMLODIPINE [Suspect]
     Active Substance: AMLODIPINE BESYLATE
     Indication: HYPERTENSION
     Dosage: 10 MG, QD, UNKNOWN
  3. CEFTRIAXONE (CEFTRIAXONE) [Concomitant]
     Active Substance: CEFTRIAXONE

REACTIONS (8)
  - Muscle atrophy [None]
  - Urinary tract infection [None]
  - Rhabdomyolysis [None]
  - Acute kidney injury [None]
  - Myopathy [None]
  - Drug interaction [None]
  - Acute respiratory distress syndrome [None]
  - Chronic kidney disease [None]
